FAERS Safety Report 15267949 (Version 1)
Quarter: 2018Q3

REPORT INFORMATION
  Report Type: Spontaneous
  Country: US (occurrence: US)
  Receive Date: 20180725
  Receipt Date: 20180725
  Transmission Date: 20181010
  Serious: Yes (Hospitalization, Disabling, Other)
  Sender: FDA-Public Use
  Company Number: None

PATIENT
  Age: 24 Year
  Sex: Female
  Weight: 154.35 kg

DRUGS (3)
  1. LUPRON DEPOT [Suspect]
     Active Substance: LEUPROLIDE ACETATE
     Indication: PELVIC PAIN
     Dates: start: 20171103, end: 20180201
  2. LUPRON DEPOT [Suspect]
     Active Substance: LEUPROLIDE ACETATE
     Indication: HAEMORRHAGE
     Dates: start: 20171103, end: 20180201
  3. MIRENA [Suspect]
     Active Substance: LEVONORGESTREL
     Indication: HAEMORRHAGE
     Dates: start: 20170413, end: 20170424

REACTIONS (7)
  - Pelvic pain [None]
  - Loss of personal independence in daily activities [None]
  - Loss of consciousness [None]
  - Vaginal haemorrhage [None]
  - Emotional distress [None]
  - Impaired work ability [None]
  - Device expulsion [None]

NARRATIVE: CASE EVENT DATE: 20170414
